FAERS Safety Report 20074056 (Version 2)
Quarter: 2021Q4

REPORT INFORMATION
  Report Type: Spontaneous
  Country: US (occurrence: US)
  Receive Date: 20211116
  Receipt Date: 20211117
  Transmission Date: 20220303
  Serious: Yes (Hospitalization, Other)
  Sender: FDA-Public Use
  Company Number: US-MACLEODS PHARMACEUTICALS US LTD-MAC2021033307

PATIENT

DRUGS (13)
  1. QUETIAPINE [Suspect]
     Active Substance: QUETIAPINE
     Indication: Major depression
     Dosage: 50 MILLIGRAM, QD (AT BEDTIME)
     Route: 048
  2. QUETIAPINE [Suspect]
     Active Substance: QUETIAPINE
     Dosage: 50 MILLIGRAM, BID
     Route: 048
  3. QUETIAPINE [Suspect]
     Active Substance: QUETIAPINE
     Dosage: 25 MILLIGRAM, BID AT EVENING 21:00
     Route: 048
  4. HALOPERIDOL [Suspect]
     Active Substance: HALOPERIDOL
     Indication: Major depression
     Dosage: 2 MILLIGRAM, QD (AT BEDTIME)
     Route: 048
  5. HALOPERIDOL [Suspect]
     Active Substance: HALOPERIDOL
     Dosage: 4 MILLIGRAM, QD (AT BEDTIME)
     Route: 048
  6. HALOPERIDOL [Suspect]
     Active Substance: HALOPERIDOL
     Dosage: UNK, ORAL CONCENTRATE OR INTRAMUSCULAR INJECTIONS
  7. SERTRALINE [Concomitant]
     Active Substance: SERTRALINE HYDROCHLORIDE
     Indication: Major depression
     Dosage: 50 MILLIGRAM, QD (EACH MORNING)
     Route: 065
  8. SERTRALINE [Concomitant]
     Active Substance: SERTRALINE HYDROCHLORIDE
     Dosage: 100 MILLIGRAM, QD (EACH MORNING)
     Route: 065
  9. MICONAZOLE [Concomitant]
     Active Substance: MICONAZOLE
     Indication: Bacterial vulvovaginitis
     Dosage: UNK, (1 APPLICATOR VAGINALLY QHS)
     Route: 067
  10. MICONAZOLE [Concomitant]
     Active Substance: MICONAZOLE
     Indication: Candida infection
  11. METRONIDAZOLE [Concomitant]
     Active Substance: METRONIDAZOLE
     Indication: Bacterial vulvovaginitis
     Dosage: 500 MILLIGRAM, BID
     Route: 048
  12. METRONIDAZOLE [Concomitant]
     Active Substance: METRONIDAZOLE
     Indication: Candida infection
  13. SORBITOL [Concomitant]
     Active Substance: SORBITOL
     Indication: Product used for unknown indication
     Dosage: 30 MILLILITER, QD
     Route: 048

REACTIONS (9)
  - Respiratory alkalosis [Recovered/Resolved]
  - Tachypnoea [Unknown]
  - Sinus tachycardia [Unknown]
  - Ventricular extrasystoles [Unknown]
  - Metabolic acidosis [Unknown]
  - Drug withdrawal syndrome [Unknown]
  - Hyperventilation [Unknown]
  - Anxiety [Unknown]
  - Extrapyramidal disorder [Unknown]
